FAERS Safety Report 25829081 (Version 1)
Quarter: 2025Q3

REPORT INFORMATION
  Report Type: Spontaneous
  Country: RU (occurrence: RU)
  Receive Date: 20250922
  Receipt Date: 20250922
  Transmission Date: 20251020
  Serious: Yes (Hospitalization)
  Sender: ALEXION PHARMACEUTICALS
  Company Number: RU-ASTRAZENECA-202509EAF013791RU

PATIENT
  Sex: Female

DRUGS (1)
  1. PULMICORT TURBUHALER [Suspect]
     Active Substance: BUDESONIDE
     Route: 065

REACTIONS (4)
  - Pneumonia [Unknown]
  - Cough [Unknown]
  - Vomiting [Unknown]
  - Oral candidiasis [Unknown]
